FAERS Safety Report 24907675 (Version 1)
Quarter: 2025Q1

REPORT INFORMATION
  Report Type: Spontaneous
  Country: ES (occurrence: ES)
  Receive Date: 20250131
  Receipt Date: 20250131
  Transmission Date: 20250409
  Serious: Yes (Other)
  Sender: NOVARTIS
  Company Number: ES-002147023-NVSC2025ES014406

PATIENT
  Sex: Male

DRUGS (1)
  1. LEQVIO [Suspect]
     Active Substance: INCLISIRAN SODIUM
     Indication: Myasthenia gravis
     Route: 065
     Dates: start: 202412

REACTIONS (2)
  - Myasthenia gravis [Unknown]
  - Product use in unapproved indication [Unknown]
